FAERS Safety Report 19704022 (Version 1)
Quarter: 2021Q3

REPORT INFORMATION
  Report Type: Spontaneous
  Country: IT (occurrence: IT)
  Receive Date: 20210816
  Receipt Date: 20210816
  Transmission Date: 20211014
  Serious: Yes (Death, Other)
  Sender: FDA-Public Use
  Company Number: IT-HQ SPECIALTY-IT-2021INT000144

PATIENT

DRUGS (2)
  1. DOXORUBICIN [Suspect]
     Active Substance: DOXORUBICIN
     Indication: THYMOMA
     Dosage: 25 MG/M2, UNK
     Route: 042
  2. CISPLATIN. [Suspect]
     Active Substance: CISPLATIN
     Indication: THYMOMA
     Dosage: 80 MG/M2, UNK
     Route: 042

REACTIONS (1)
  - Toxicity to various agents [Fatal]
